FAERS Safety Report 12604578 (Version 4)
Quarter: 2016Q3

REPORT INFORMATION
  Report Type: Report from Study
  Country: CA (occurrence: CA)
  Receive Date: 20160728
  Receipt Date: 20160826
  Transmission Date: 20161109
  Serious: Yes (Other)
  Sender: FDA-Public Use
  Company Number: CA-ABBVIE-12P-028-0934677-00

PATIENT
  Age: 20 Year
  Sex: Male
  Weight: 39.95 kg

DRUGS (4)
  1. HUMIRA [Suspect]
     Active Substance: ADALIMUMAB
     Route: 058
     Dates: end: 20160708
  2. HUMIRA [Suspect]
     Active Substance: ADALIMUMAB
     Indication: CROHN^S DISEASE
     Route: 058
     Dates: start: 20080101, end: 2011
  3. HUMIRA [Suspect]
     Active Substance: ADALIMUMAB
     Route: 058
     Dates: start: 20160804
  4. CIPROFLOXACIN. [Concomitant]
     Active Substance: CIPROFLOXACIN
     Indication: CROHN^S DISEASE
     Route: 048
     Dates: start: 2007

REACTIONS (15)
  - Fistula discharge [Not Recovered/Not Resolved]
  - Fistula inflammation [Not Recovered/Not Resolved]
  - Erythema [Not Recovered/Not Resolved]
  - Anal fistula [Not Recovered/Not Resolved]
  - Drug dose omission [Unknown]
  - Abscess [Recovering/Resolving]
  - Drug ineffective [Recovered/Resolved]
  - Proctitis [Not Recovered/Not Resolved]
  - Local swelling [Not Recovered/Not Resolved]
  - Asthenia [Unknown]
  - Fistula [Recovering/Resolving]
  - Impaired healing [Recovering/Resolving]
  - Abscess [Not Recovered/Not Resolved]
  - Anorectal swelling [Unknown]
  - Rectal discharge [Unknown]

NARRATIVE: CASE EVENT DATE: 20080101
